FAERS Safety Report 7998129-4 (Version None)
Quarter: 2011Q4

REPORT INFORMATION
  Report Type: 
  Country: None (occurrence: None)
  Receive Date: 20111221
  Receipt Date: 20110221
  Transmission Date: 20120403
  Serious: No
  Sender: FDA-Public Use
  Company Number: US-GLAXOSMITHKLINE-A0914679A

PATIENT
  Age: 84 Year
  Sex: Female

DRUGS (4)
  1. ALTACE [Concomitant]
  2. TENORMIN [Concomitant]
  3. LOVAZA [Suspect]
     Indication: PRODUCT USED FOR UNKNOWN INDICATION
     Dosage: 2MG TWICE PER DAY
     Route: 048
     Dates: start: 20090715
  4. VITAMIN D [Concomitant]

REACTIONS (2)
  - GASTRIC DISORDER [None]
  - PRODUCT QUALITY ISSUE [None]
